FAERS Safety Report 4709504-5 (Version None)
Quarter: 2005Q3

REPORT INFORMATION
  Report Type: 
  Country: None (occurrence: None)
  Receive Date: 20050706
  Receipt Date: 20050706
  Transmission Date: 20060218
  Serious: No
  Sender: FDA-Public Use
  Company Number: None

PATIENT
  Age: 61 Year
  Sex: Female

DRUGS (4)
  1. VISIPAQUE 320 [Suspect]
     Indication: DIAGNOSTIC PROCEDURE
     Dosage: 320 MG   STAT    INTRAVENOU
     Route: 042
     Dates: start: 20050429, end: 20050429
  2. PROCARDIA [Concomitant]
  3. FOLIC ACID [Concomitant]
  4. FEOSOL [Concomitant]

REACTIONS (1)
  - URTICARIA [None]
